FAERS Safety Report 18368673 (Version 3)
Quarter: 2021Q1

REPORT INFORMATION
  Report Type: Spontaneous
  Country: US (occurrence: US)
  Receive Date: 20201010
  Receipt Date: 20210128
  Transmission Date: 20210419
  Serious: Yes (Hospitalization)
  Sender: FDA-Public Use
  Company Number: US-ABBVIE-20K-163-3599509-00

PATIENT
  Age: 56 Year
  Sex: Female
  Weight: 80.36 kg

DRUGS (4)
  1. CREON [Suspect]
     Active Substance: PANCRELIPASE AMYLASE\PANCRELIPASE LIPASE\PANCRELIPASE PROTEASE
     Indication: PANCREATIC FAILURE
     Dosage: 2 CAPSULES EACH MEAL?DEPENDS ON NUMBER OF MEALS
     Route: 048
     Dates: start: 201906, end: 202012
  2. CREON [Suspect]
     Active Substance: PANCRELIPASE AMYLASE\PANCRELIPASE LIPASE\PANCRELIPASE PROTEASE
     Dosage: 1 CAPSULES EACH MEAL
     Route: 048
     Dates: start: 202012
  3. SUMATRIPTAN. [Concomitant]
     Active Substance: SUMATRIPTAN
     Indication: MIGRAINE
  4. BOTOX [Concomitant]
     Active Substance: ONABOTULINUMTOXINA
     Indication: MIGRAINE

REACTIONS (11)
  - Pancreatitis acute [Recovered/Resolved]
  - Abdominal distension [Not Recovered/Not Resolved]
  - Pancreatitis [Recovered/Resolved]
  - Pancreatitis [Recovered/Resolved]
  - Gait disturbance [Recovered/Resolved]
  - Fluid retention [Not Recovered/Not Resolved]
  - Cholecystectomy [Recovered/Resolved]
  - Pancreatitis acute [Recovered/Resolved]
  - Oedematous pancreatitis [Not Recovered/Not Resolved]
  - Fluid retention [Not Recovered/Not Resolved]
  - Peripancreatic fluid collection [Recovering/Resolving]

NARRATIVE: CASE EVENT DATE: 201911
